FAERS Safety Report 4982799-9 (Version None)
Quarter: 2006Q2

REPORT INFORMATION
  Report Type: 
  Country: None (occurrence: None)
  Receive Date: 20060425
  Receipt Date: 20050912
  Transmission Date: 20061013
  Serious: Yes (Hospitalization, Other)
  Sender: FDA-Public Use
  Company Number: US-MERCK-0509USA01659

PATIENT
  Age: 74 Year
  Sex: Female
  Weight: 68 kg

DRUGS (1)
  1. VIOXX [Suspect]
     Route: 048
     Dates: start: 19960101, end: 20000101

REACTIONS (23)
  - ANAEMIA [None]
  - ASBESTOSIS [None]
  - BRONCHITIS [None]
  - CARDIAC DISORDER [None]
  - CARDIAC FAILURE CONGESTIVE [None]
  - CEREBROVASCULAR ACCIDENT [None]
  - CONVULSION [None]
  - CYSTITIS [None]
  - FEMALE GENITAL TRACT FISTULA [None]
  - FOOT FRACTURE [None]
  - FRACTURE [None]
  - GASTROINTESTINAL HAEMORRHAGE [None]
  - GOUT [None]
  - INCONTINENCE [None]
  - INFECTION [None]
  - INFLUENZA [None]
  - INTESTINAL STENOSIS [None]
  - LIVER DISORDER [None]
  - MYOCARDIAL INFARCTION [None]
  - OESOPHAGEAL DISORDER [None]
  - PNEUMONIA [None]
  - SKIN LESION [None]
  - TRANSIENT ISCHAEMIC ATTACK [None]
